FAERS Safety Report 8371925-X (Version None)
Quarter: 2012Q2

REPORT INFORMATION
  Report Type: 
  Country: None (occurrence: None)
  Receive Date: 20120518
  Receipt Date: 20120510
  Transmission Date: 20120825
  Serious: Yes (Hospitalization, Other)
  Sender: FDA-Public Use
  Company Number: US-ROCHE-784688

PATIENT
  Sex: Female
  Weight: 88.076 kg

DRUGS (2)
  1. ACCUTANE [Suspect]
     Indication: ACNE
     Route: 065
     Dates: start: 19960509, end: 19960901
  2. ORTHO CYCLEN-28 [Concomitant]

REACTIONS (10)
  - DEPRESSION [None]
  - COLONIC POLYP [None]
  - CROHN'S DISEASE [None]
  - INFLAMMATORY BOWEL DISEASE [None]
  - ERYTHEMA [None]
  - SMALL INTESTINAL OBSTRUCTION [None]
  - IRRITABLE BOWEL SYNDROME [None]
  - SKIN EXFOLIATION [None]
  - PHOTOSENSITIVITY REACTION [None]
  - LIP BLISTER [None]
